FAERS Safety Report 13655600 (Version 3)
Quarter: 2017Q3

REPORT INFORMATION
  Report Type: Spontaneous
  Country: US (occurrence: US)
  Receive Date: 20170615
  Receipt Date: 20170914
  Transmission Date: 20171127
  Serious: No
  Sender: FDA-Public Use
  Company Number: US-PFIZER INC-2017257758

PATIENT
  Age: 58 Year
  Sex: Female
  Weight: 49 kg

DRUGS (5)
  1. CALCIUM [Concomitant]
     Active Substance: CALCIUM
     Indication: BONE DISORDER
     Dosage: UNK
  2. FISH OIL [Concomitant]
     Active Substance: FISH OIL
     Dosage: UNK
  3. EUCRISA [Suspect]
     Active Substance: CRISABOROLE
     Indication: ECZEMA
     Dosage: 2%, TWICE A DAY (APPLY CREAM OVER TO SEAL IN)
     Dates: start: 20170608, end: 20170624
  4. LEVOCETIRIZINE [Concomitant]
     Active Substance: LEVOCETIRIZINE
     Dosage: 5 MG, UNK
  5. VITAMIN D [Concomitant]
     Active Substance: CHOLECALCIFEROL
     Dosage: UNK

REACTIONS (4)
  - Application site rash [Recovered/Resolved]
  - Hypersensitivity [Unknown]
  - Application site pruritus [Recovered/Resolved]
  - Application site erythema [Recovered/Resolved]

NARRATIVE: CASE EVENT DATE: 20170609
